FAERS Safety Report 11415167 (Version 1)
Quarter: 2015Q3

REPORT INFORMATION
  Report Type: Spontaneous
  Country: US (occurrence: US)
  Receive Date: 20150825
  Receipt Date: 20150825
  Transmission Date: 20151125
  Serious: No
  Sender: FDA-Public Use
  Company Number: US-DRREDDYS-USA/USA/15/0048190

PATIENT
  Sex: Female

DRUGS (1)
  1. FONDAPARINUX SODIUM 2.5 MG/0.5 ML [Suspect]
     Active Substance: FONDAPARINUX SODIUM
     Indication: ANTICOAGULANT THERAPY
     Dates: start: 20150511, end: 20150520

REACTIONS (2)
  - Drug dose omission [Unknown]
  - Product physical issue [Unknown]
